FAERS Safety Report 11894411 (Version 1)
Quarter: 2016Q1

REPORT INFORMATION
  Report Type: Spontaneous
  Country: US (occurrence: None)
  Receive Date: 20160106
  Receipt Date: 20160106
  Transmission Date: 20160526
  Serious: Yes (Hospitalization)
  Sender: FDA-Public Use
  Company Number: None

PATIENT
  Age: 60 Year
  Sex: Male
  Weight: 79.1 kg

DRUGS (1)
  1. XELODA [Suspect]
     Active Substance: CAPECITABINE
     Dates: end: 20151029

REACTIONS (7)
  - Small intestinal obstruction [None]
  - Pyrexia [None]
  - Nausea [None]
  - Dehydration [None]
  - Vomiting [None]
  - Abdominal pain [None]
  - Feeling cold [None]

NARRATIVE: CASE EVENT DATE: 20151212
